FAERS Safety Report 9582132 (Version 1)
Quarter: 2013Q4

REPORT INFORMATION
  Report Type: Spontaneous
  Country: US (occurrence: US)
  Receive Date: 20131002
  Receipt Date: 20131002
  Transmission Date: 20140711
  Serious: No
  Sender: FDA-Public Use
  Company Number: US-AMGEN-USASP2013043601

PATIENT
  Age: 61 Year
  Sex: Female
  Weight: 77.1 kg

DRUGS (29)
  1. ENBREL [Suspect]
     Indication: PRODUCT USED FOR UNKNOWN INDICATION
     Dosage: 25 MG, 2 TIMES/WK
     Route: 058
  2. CYMBALTA [Concomitant]
     Dosage: 20 MG, UNK
  3. AMBIEN CR [Concomitant]
     Dosage: 6.25 MG, UNK
  4. COLCRYS [Concomitant]
     Dosage: 0.6 MG, UNK
  5. PREDNISONE [Concomitant]
     Dosage: 20 MG, UNK
  6. BONIVA [Concomitant]
     Dosage: 2.5 MG, UNK
  7. EVOXAC [Concomitant]
     Dosage: 30 MG, UNK
  8. CITRACAL + D                       /01438101/ [Concomitant]
     Dosage: UNK
  9. VIT D3 [Concomitant]
     Dosage: UNK
  10. VIT C [Concomitant]
     Dosage: UNK
  11. VITAMIN A                          /00056001/ [Concomitant]
     Dosage: 10000 UNIT, UNK
  12. LIPITOR [Concomitant]
     Dosage: 10 MG, UNK
  13. AZATHIOPRINE [Concomitant]
     Dosage: 50 MG, UNK
  14. LISINOPRIL [Concomitant]
     Dosage: 10 MG, UNK
  15. PREVACID [Concomitant]
     Dosage: 30 MG, UNK
  16. SYNTHROID [Concomitant]
     Dosage: 100 MUG, UNK
  17. ALLEGRA [Concomitant]
     Dosage: 180 MG, UNK
  18. MONTELUKAST [Concomitant]
     Dosage: 10 MG, UNK
  19. ADVAIR [Concomitant]
     Dosage: 100/50
  20. ALBUTEROL                          /00139501/ [Concomitant]
     Dosage: 90 MUG, UNK
  21. RESTASIS [Concomitant]
     Dosage: 0.05 %, UNK
  22. PATANOL S [Concomitant]
     Dosage: 0.1 %, UNK
  23. BRIMONIDINE [Concomitant]
     Dosage: 0.15 %, UNK
  24. BETOPTIC S [Concomitant]
     Dosage: 0.25 %, UNK
  25. VAGIFEM [Concomitant]
     Dosage: 10 MUG, UNK
  26. CENTRUM SILVER                     /02363801/ [Concomitant]
     Dosage: UNK
  27. IPRATROPIUM [Concomitant]
     Dosage: 0.03 %, UNK
  28. LIDOCAIN                           /00033401/ [Concomitant]
     Dosage: 8 MG, UNK
  29. CLARITIN                           /00917501/ [Concomitant]
     Dosage: 10 MG, UNK

REACTIONS (1)
  - Condition aggravated [Unknown]
